FAERS Safety Report 9679196 (Version 2)
Quarter: 2013Q4

REPORT INFORMATION
  Report Type: Spontaneous
  Country: IN (occurrence: IN)
  Receive Date: 20131108
  Receipt Date: 20131121
  Transmission Date: 20140711
  Serious: Yes (Hospitalization, Disabling, Other)
  Sender: FDA-Public Use
  Company Number: IN-009507513-1311IND002565

PATIENT
  Age: 87 Year
  Sex: Male

DRUGS (1)
  1. JANUMET [Suspect]
     Indication: TYPE 2 DIABETES MELLITUS
     Dosage: 50/500, ONCE DAILY
     Route: 048
     Dates: start: 201201, end: 201310

REACTIONS (2)
  - Pancreatic carcinoma [Not Recovered/Not Resolved]
  - Inappropriate schedule of drug administration [Unknown]
